FAERS Safety Report 9175681 (Version 1)
Quarter: 2013Q1

REPORT INFORMATION
  Report Type: Report from Study
  Country: US (occurrence: US)
  Receive Date: 20130320
  Receipt Date: 20130320
  Transmission Date: 20140127
  Serious: Yes (Hospitalization, Other)
  Sender: FDA-Public Use
  Company Number: US-PFIZER INC-2011110760

PATIENT
  Age: 57 Year
  Sex: Female
  Weight: 48.07 kg

DRUGS (4)
  1. LYRICA [Suspect]
     Indication: FIBROMYALGIA
     Dosage: 150 MG, 2X/DAY
     Route: 048
  2. AVONEX [Suspect]
     Indication: MULTIPLE SCLEROSIS
     Dosage: UNK
     Dates: start: 2011
  3. ROPINIROLE [Concomitant]
     Dosage: 0.5 MG, UNK
     Dates: start: 2008
  4. CLONAZEPAM [Concomitant]
     Dosage: 0.5 MG, UNK
     Dates: start: 2008

REACTIONS (8)
  - Hyponatraemia [Unknown]
  - Multiple sclerosis [Unknown]
  - Central nervous system lesion [Unknown]
  - Red blood cell count decreased [Unknown]
  - White blood cell count decreased [Unknown]
  - Hepatic enzyme decreased [Unknown]
  - Malaise [Unknown]
  - Vomiting [Unknown]
